FAERS Safety Report 8140863-X (Version None)
Quarter: 2012Q1

REPORT INFORMATION
  Report Type: 
  Country: None (occurrence: None)
  Receive Date: 20120216
  Receipt Date: 20120213
  Transmission Date: 20120608
  Serious: Yes (Death, Life-Threatening, Congenital Anomaly, Other)
  Sender: FDA-Public Use
  Company Number: US-PFIZER INC-2012038322

PATIENT
  Sex: Female

DRUGS (1)
  1. EFFEXOR [Suspect]
     Dosage: UNK
     Route: 064

REACTIONS (5)
  - MATERNAL EXPOSURE TIMING UNSPECIFIED [None]
  - AORTIC VALVE ATRESIA [None]
  - HYPOPLASTIC LEFT HEART SYNDROME [None]
  - CONGENITAL AORTIC ANOMALY [None]
  - CONGENITAL HEART VALVE DISORDER [None]
